FAERS Safety Report 9299975 (Version 1)
Quarter: 2012Q4

REPORT INFORMATION
  Report Type: Spontaneous
  Country: JP (occurrence: None)
  Receive Date: 20121108
  Receipt Date: 20121108
  Transmission Date: 20130627
  Serious: No
  Sender: FDA-Public Use
  Company Number: B0841634A

PATIENT
  Age: 56 Year
  Sex: Male

DRUGS (3)
  1. CLOBETASOL PROPIONATE [Suspect]
     Indication: PSORIASIS
     Route: 061
  2. CALCIPOTRIOL [Concomitant]
  3. CYCLOSPORIN [Concomitant]

REACTIONS (7)
  - Skin atrophy [None]
  - Blood cholesterol increased [None]
  - Blood triglycerides increased [None]
  - Adrenal suppression [None]
  - Blood cortisol decreased [None]
  - Blood corticotrophin decreased [None]
  - Osteochondrosis [None]
